FAERS Safety Report 9921852 (Version 1)
Quarter: 2014Q1

REPORT INFORMATION
  Report Type: Spontaneous
  Country: US (occurrence: None)
  Receive Date: 20140221
  Receipt Date: 20140221
  Transmission Date: 20141002
  Serious: Yes (Other)
  Sender: FDA-Public Use
  Company Number: None

PATIENT
  Age: 46 Year
  Sex: Female
  Weight: 88.45 kg

DRUGS (1)
  1. KENALOG 40MG BRISTOL MEYERS [Suspect]
     Indication: ARTHRITIS
     Dosage: ONE TIME INTO THE MUSCLE
     Dates: start: 20131223

REACTIONS (3)
  - Menorrhagia [None]
  - Menorrhagia [None]
  - Menstrual disorder [None]
